FAERS Safety Report 15007128 (Version 3)
Quarter: 2018Q3

REPORT INFORMATION
  Report Type: Spontaneous
  Country: US (occurrence: US)
  Receive Date: 20180613
  Receipt Date: 20180704
  Transmission Date: 20181010
  Serious: Yes (Other)
  Sender: FDA-Public Use
  Company Number: US-009507513-1805USA005979

PATIENT
  Age: 27 Year
  Sex: Female
  Weight: 81.63 kg

DRUGS (2)
  1. NEXPLANON [Suspect]
     Active Substance: ETONOGESTREL
     Indication: CONTRACEPTION
     Dosage: 68 MG, ONCE, CONTINUOUS
     Route: 059
     Dates: start: 20180228, end: 20180514
  2. ZOLOFT [Concomitant]
     Active Substance: SERTRALINE HYDROCHLORIDE
     Indication: GENERALISED ANXIETY DISORDER
     Dosage: 100 MG, QD
     Route: 048
     Dates: start: 20180208

REACTIONS (8)
  - Product quality issue [Unknown]
  - Device expulsion [Recovered/Resolved with Sequelae]
  - Implant site scar [Unknown]
  - Device deployment issue [Recovered/Resolved]
  - Wrong technique in product usage process [Unknown]
  - Device dislocation [Recovered/Resolved]
  - Device difficult to use [Recovered/Resolved]
  - Device issue [Recovered/Resolved]

NARRATIVE: CASE EVENT DATE: 2018
